FAERS Safety Report 7660030-3 (Version None)
Quarter: 2011Q3

REPORT INFORMATION
  Report Type: 
  Country: None (occurrence: None)
  Receive Date: 20110805
  Receipt Date: 20110729
  Transmission Date: 20111222
  Serious: Yes (Life-Threatening)
  Sender: FDA-Public Use
  Company Number: ZA-GILEAD-2011-0041394

PATIENT
  Sex: Female

DRUGS (2)
  1. EMTRICITABINE/TENOFOVIR DISOPROXIL FUMARATE [Suspect]
     Indication: HIV INFECTION
     Route: 048
     Dates: start: 20110303, end: 20110627
  2. EMTRICITABINE/TENOFOVIR DISOPROXIL FUMARATE [Suspect]
     Route: 048
     Dates: start: 20110726

REACTIONS (1)
  - ALANINE AMINOTRANSFERASE INCREASED [None]
